FAERS Safety Report 5856080-X (Version None)
Quarter: 2008Q3

REPORT INFORMATION
  Report Type: 
  Country: None (occurrence: None)
  Receive Date: 20080814
  Receipt Date: 20071026
  Transmission Date: 20090109
  Serious: Yes (Hospitalization)
  Sender: FDA-Public Use
  Company Number: PHEH2007US13501

PATIENT
  Age: 71 Year
  Sex: Female

DRUGS (6)
  1. MIACALCIN [Suspect]
     Indication: OSTEITIS DEFORMANS
     Dosage: 50 IU, QD, INJECTION NOS
     Dates: start: 20070701, end: 20070901
  2. ASPIRIN [Concomitant]
  3. ACIPHEX [Concomitant]
  4. DIOVAN HCT [Concomitant]
  5. LOTREL [Concomitant]
  6. CELEBREX [Concomitant]

REACTIONS (6)
  - ANGIOEDEMA [None]
  - BLOOD ALKALINE PHOSPHATASE INCREASED [None]
  - HYPERSENSITIVITY [None]
  - LIP SWELLING [None]
  - MEDICATION ERROR [None]
  - URTICARIA [None]
